FAERS Safety Report 25180475 (Version 1)
Quarter: 2025Q2

REPORT INFORMATION
  Report Type: Spontaneous
  Country: US (occurrence: US)
  Receive Date: 20250409
  Receipt Date: 20250409
  Transmission Date: 20250716
  Serious: Yes (Other)
  Sender: BOTANIX PHARMACEUTICALS
  Company Number: US-BOTANIX PHARMACEUTICALS-2025BOT00010

PATIENT
  Sex: Male

DRUGS (3)
  1. SOFDRA [Suspect]
     Active Substance: SOFPIRONIUM BROMIDE
     Indication: Hyperhidrosis
     Dosage: 1 DOSAGE UNITS, 1X/DAY
     Route: 061
     Dates: start: 20250107, end: 20250201
  2. SOFDRA [Suspect]
     Active Substance: SOFPIRONIUM BROMIDE
     Dosage: 1 DOSAGE UNITS, 1X/DAY
     Route: 061
     Dates: start: 20250203
  3. VITAMIN D3 [Concomitant]
     Active Substance: CHOLECALCIFEROL

REACTIONS (7)
  - Urinary retention [Recovering/Resolving]
  - Pharyngitis streptococcal [Not Recovered/Not Resolved]
  - Application site urticaria [Not Recovered/Not Resolved]
  - Hypersensitivity [Not Recovered/Not Resolved]
  - Dry mouth [Not Recovered/Not Resolved]
  - Vision blurred [Not Recovered/Not Resolved]
  - Application site irritation [Not Recovered/Not Resolved]

NARRATIVE: CASE EVENT DATE: 20250101
